FAERS Safety Report 25585498 (Version 1)
Quarter: 2025Q3

REPORT INFORMATION
  Report Type: Spontaneous
  Country: US (occurrence: None)
  Receive Date: 20250718
  Receipt Date: 20250718
  Transmission Date: 20251020
  Serious: Yes (Other)
  Sender: FDA-CTU
  Company Number: None

PATIENT
  Age: 58 Year
  Sex: Female

DRUGS (2)
  1. OTULFI [Suspect]
     Active Substance: USTEKINUMAB-AAUZ
  2. YESINTEK [Suspect]
     Active Substance: USTEKINUMAB-KFCE

REACTIONS (1)
  - COVID-19 [None]
